FAERS Safety Report 4455586-8 (Version None)
Quarter: 2004Q3

REPORT INFORMATION
  Report Type: 
  Country: None (occurrence: None)
  Receive Date: 20040917
  Receipt Date: 20040901
  Transmission Date: 20050211
  Serious: Yes (Life-Threatening)
  Sender: FDA-Public Use
  Company Number: FR_040904661

PATIENT
  Age: 59 Year
  Sex: Female
  Weight: 86 kg

DRUGS (2)
  1. GEMZAR [Suspect]
     Indication: BREAST CANCER
     Dates: start: 20031220, end: 20040123
  2. NAVELBINE [Concomitant]

REACTIONS (4)
  - DISEASE RECURRENCE [None]
  - HYPERCAPNIA [None]
  - PLEURAL EFFUSION [None]
  - PNEUMONITIS [None]
